FAERS Safety Report 8849471 (Version 4)
Quarter: 2013Q3

REPORT INFORMATION
  Report Type: Report from Study
  Country: FR (occurrence: FR)
  Receive Date: 20121019
  Receipt Date: 20130903
  Transmission Date: 20140515
  Serious: Yes (Life-Threatening, Hospitalization, Other)
  Sender: FDA-Public Use
  Company Number: PHHY2012FR090474

PATIENT
  Age: 17 Year
  Sex: Male
  Weight: 58 kg

DRUGS (2)
  1. SOMATROPIN [Suspect]
     Indication: GROWTH HORMONE DEFICIENCY
     Dosage: UNK UKN, UNK
     Route: 058
     Dates: start: 20101108
  2. SOMATROPIN [Suspect]
     Dosage: 0.035 MG/KG, AT BEDTIME
     Route: 058
     Dates: start: 20120102, end: 20120530

REACTIONS (2)
  - Testicular germ cell cancer [Unknown]
  - Testicular pain [Unknown]
